FAERS Safety Report 8526258 (Version 11)
Quarter: 2013Q2

REPORT INFORMATION
  Report Type: Spontaneous
  Country: JP (occurrence: JP)
  Receive Date: 20120423
  Receipt Date: 20130521
  Transmission Date: 20140414
  Serious: Yes (Hospitalization)
  Sender: FDA-Public Use
  Company Number: JP-CELGENEUS-087-21880-12041771

PATIENT
  Age: 67 Year
  Sex: Male
  Weight: 76 kg

DRUGS (43)
  1. REVLIMID [Suspect]
     Indication: PLASMA CELL MYELOMA
     Dosage: 15 MILLIGRAM
     Route: 048
     Dates: start: 20120124
  2. DEXAMETHASONE [Suspect]
     Indication: PLASMA CELL MYELOMA
     Dosage: 40 MILLIGRAM
     Route: 048
     Dates: start: 20120124
  3. ELOTUZUMAB [Suspect]
     Indication: PLASMA CELL MYELOMA
     Route: 065
  4. INFLUENZA VACCINE [Concomitant]
     Indication: PRODUCT USED FOR UNKNOWN INDICATION
     Route: 050
     Dates: start: 20121121, end: 20121121
  5. ASPIRIN [Concomitant]
     Indication: PRODUCT USED FOR UNKNOWN INDICATION
     Route: 065
     Dates: start: 20120124, end: 20120404
  6. ASPIRIN [Concomitant]
     Route: 065
     Dates: start: 20120418, end: 20120418
  7. ASPIRIN [Concomitant]
     Route: 065
     Dates: start: 20120426, end: 20121225
  8. LEVOFLOXACIN HYDRATE [Concomitant]
     Indication: PRODUCT USED FOR UNKNOWN INDICATION
     Route: 065
     Dates: start: 20120126, end: 20120130
  9. LEVOFLOXACIN HYDRATE [Concomitant]
     Route: 065
     Dates: start: 20120412, end: 20120418
  10. SYAKUYAKU-KANZO [Concomitant]
     Indication: PRODUCT USED FOR UNKNOWN INDICATION
     Route: 065
     Dates: start: 20120301
  11. CEFAZOLIN SODIUM [Concomitant]
     Indication: PRODUCT USED FOR UNKNOWN INDICATION
     Route: 065
     Dates: start: 20120413, end: 20120414
  12. CARBAZOCHROME SODIUM SULFATE HYDRATE [Concomitant]
     Indication: PRODUCT USED FOR UNKNOWN INDICATION
     Route: 065
     Dates: start: 20120413, end: 20120414
  13. TAMSULOSIN HYDROCHLORIDE [Concomitant]
     Indication: PRODUCT USED FOR UNKNOWN INDICATION
     Route: 065
     Dates: start: 20111104, end: 20120307
  14. PREDNISOLONE [Concomitant]
     Indication: PRODUCT USED FOR UNKNOWN INDICATION
     Route: 065
     Dates: start: 20120208
  15. ACETAMINOPHEN [Concomitant]
     Indication: ADVERSE EVENT
     Route: 065
     Dates: start: 20120126, end: 20120127
  16. ACETAMINOPHEN [Concomitant]
     Route: 065
     Dates: start: 20120204, end: 20120207
  17. ACETAMINOPHEN [Concomitant]
     Route: 065
     Dates: start: 20120209, end: 20120214
  18. ACETAMINOPHEN [Concomitant]
     Route: 065
     Dates: start: 20120629, end: 20120709
  19. EVIPROSTAT [Concomitant]
     Indication: PRODUCT USED FOR UNKNOWN INDICATION
     Route: 065
     Dates: start: 20120307, end: 20121113
  20. SILODOSIN [Concomitant]
     Indication: PRODUCT USED FOR UNKNOWN INDICATION
     Route: 065
     Dates: start: 20120307, end: 20120626
  21. VIDARABINE [Concomitant]
     Indication: PRODUCT USED FOR UNKNOWN INDICATION
     Route: 065
     Dates: start: 20120123, end: 20120130
  22. MAGNESIUM OXIDE [Concomitant]
     Indication: PRODUCT USED FOR UNKNOWN INDICATION
     Route: 065
     Dates: start: 20120126
  23. PANTETHINE [Concomitant]
     Indication: ADVERSE EVENT
     Route: 065
     Dates: start: 20120126
  24. GLYCINE [Concomitant]
     Indication: ADVERSE EVENT
     Route: 065
     Dates: start: 20120127
  25. ZOPICLONE [Concomitant]
     Indication: ADVERSE EVENT
     Route: 065
     Dates: start: 20120125, end: 20120125
  26. METOCLOPRAMIDE HYDROCHLORIDE [Concomitant]
     Indication: ADVERSE EVENT
     Route: 065
     Dates: start: 20120126, end: 20120126
  27. FAMOTIDINE [Concomitant]
     Indication: PRODUCT USED FOR UNKNOWN INDICATION
     Route: 065
     Dates: start: 20111228
  28. TRIMETHOPRIM [Concomitant]
     Indication: PRODUCT USED FOR UNKNOWN INDICATION
     Route: 065
     Dates: start: 20111228
  29. FELBINAC [Concomitant]
     Indication: ADVERSE EVENT
     Route: 065
     Dates: start: 20121211, end: 20130110
  30. PL GRANULE [Concomitant]
     Indication: ADVERSE EVENT
     Route: 065
     Dates: start: 20120629, end: 20120701
  31. PL GRANULE [Concomitant]
     Route: 065
     Dates: start: 20121012, end: 20121014
  32. PL GRANULE [Concomitant]
     Route: 065
     Dates: start: 20121026, end: 20121026
  33. PL GRANULE [Concomitant]
     Route: 065
     Dates: start: 20121230, end: 20130103
  34. AKADAMA SHISYAYAKU [Concomitant]
     Indication: ADVERSE EVENT
     Route: 065
     Dates: start: 20120607, end: 20120607
  35. DUTASTERIDE [Concomitant]
     Indication: PRODUCT USED FOR UNKNOWN INDICATION
     Route: 065
     Dates: start: 20121114
  36. LOXOPROFEN SODIUM HYDRATE [Concomitant]
     Indication: ADVERSE EVENT
     Route: 065
     Dates: start: 20121020, end: 20121115
  37. SOLIFENACIN SUCCINATE [Concomitant]
     Indication: PRODUCT USED FOR UNKNOWN INDICATION
     Route: 065
     Dates: start: 20120627, end: 20120710
  38. SOLIFENACIN SUCCINATE [Concomitant]
     Route: 065
     Dates: start: 20120725
  39. MIRABEGRON [Concomitant]
     Indication: PRODUCT USED FOR UNKNOWN INDICATION
     Route: 065
     Dates: start: 20120711, end: 20120724
  40. MIRABEGRON [Concomitant]
     Route: 065
     Dates: start: 20120627, end: 20120710
  41. NAFTOPIDIL [Concomitant]
     Indication: PRODUCT USED FOR UNKNOWN INDICATION
     Route: 065
     Dates: start: 20120627
  42. FLUOROMETHOLONE [Concomitant]
     Indication: ADVERSE EVENT
     Route: 065
     Dates: start: 20130109
  43. CLARITHROMYCIN [Concomitant]
     Indication: ADVERSE EVENT
     Route: 065
     Dates: start: 20130104, end: 20130106

REACTIONS (1)
  - Benign prostatic hyperplasia [Recovering/Resolving]
